FAERS Safety Report 9016873 (Version 1)
Quarter: 2013Q1

REPORT INFORMATION
  Report Type: Spontaneous
  Country: US (occurrence: None)
  Receive Date: 20130116
  Receipt Date: 20130116
  Transmission Date: 20140127
  Serious: No
  Sender: FDA-Public Use
  Company Number: US-HORIZON-DUE-0004-2012

PATIENT
  Sex: Female
  Weight: 71 kg

DRUGS (4)
  1. DUEXIS [Suspect]
     Indication: ARTHRITIS
     Dosage: 0.5 DF ONCE A DAY, ORAL
     Route: 048
     Dates: start: 201203, end: 201204
  2. ACEBUTOLOL [Concomitant]
  3. QUINAPRIL [Concomitant]
  4. ASPIRIN [Concomitant]

REACTIONS (2)
  - Somnolence [None]
  - Incorrect dose administered [None]
